FAERS Safety Report 11984646 (Version 1)
Quarter: 2016Q1

REPORT INFORMATION
  Report Type: Spontaneous
  Country: US (occurrence: US)
  Receive Date: 20160201
  Receipt Date: 20160201
  Transmission Date: 20160526
  Serious: No
  Sender: FDA-Public Use
  Company Number: US-GLAXOSMITHKLINE-US2016008398

PATIENT
  Sex: Female

DRUGS (1)
  1. BENLYSTA [Suspect]
     Active Substance: BELIMUMAB
     Indication: PRODUCT USED FOR UNKNOWN INDICATION
     Dosage: UNK
     Dates: start: 201505

REACTIONS (6)
  - Influenza like illness [Unknown]
  - Labelled drug-disease interaction medication error [Unknown]
  - Infection [Unknown]
  - Pyrexia [Unknown]
  - White blood cell count abnormal [Unknown]
  - Blood urine present [Unknown]
